FAERS Safety Report 7285966-7 (Version None)
Quarter: 2011Q1

REPORT INFORMATION
  Report Type: 
  Country: None (occurrence: None)
  Receive Date: 20110210
  Receipt Date: 20110207
  Transmission Date: 20110831
  Serious: Yes (Hospitalization)
  Sender: FDA-Public Use
  Company Number: US-ABBOTT-11P-163-0703497-00

PATIENT
  Sex: Female
  Weight: 72.64 kg

DRUGS (2)
  1. HUMIRA [Suspect]
     Indication: ANKYLOSING SPONDYLITIS
     Dates: start: 20101211
  2. PERCOCET [Concomitant]
     Indication: PAIN
     Dates: start: 20110101

REACTIONS (2)
  - EXOSTOSIS [None]
  - INTERVERTEBRAL DISC DISORDER [None]
